FAERS Safety Report 23970551 (Version 1)
Quarter: 2024Q2

REPORT INFORMATION
  Report Type: Spontaneous
  Country: GB (occurrence: GB)
  Receive Date: 20240613
  Receipt Date: 20240613
  Transmission Date: 20240715
  Serious: Yes (Other)
  Sender: FDA-Public Use
  Company Number: None

PATIENT
  Age: 48 Year
  Sex: Female
  Weight: 173 kg

DRUGS (17)
  1. METRONIDAZOLE [Suspect]
     Active Substance: METRONIDAZOLE
     Indication: Post procedural infection
     Dosage: 400 MILLIGRAMS THRICE A DAY (DOSAGE TEXT: 400MGX3 A DAY FOR 7 DAYS)
     Route: 065
     Dates: start: 20240530, end: 20240602
  2. FERROUS SULFATE [Concomitant]
     Active Substance: FERROUS SULFATE
     Indication: Blood iron decreased
     Dosage: UNSPECIFIED DOSE AND FREQUENCY (ACCORD UK FERROUS SULFATE)
     Route: 065
     Dates: start: 20240418, end: 20240523
  3. CODEINE [Concomitant]
     Active Substance: CODEINE
     Indication: Hysterectomy
     Dosage: UNK
     Route: 065
     Dates: start: 20240418, end: 20240420
  4. MOVICOL [Concomitant]
     Active Substance: POLYETHYLENE GLYCOL 3350\POTASSIUM CHLORIDE\SODIUM BICARBONATE\SODIUM CHLORIDE
     Indication: Hysterectomy
     Dosage: UNK
     Route: 065
     Dates: start: 20240418, end: 20240428
  5. ESTRADIOL [Concomitant]
     Active Substance: ESTRADIOL
     Indication: Menopause
     Dosage: UNK
     Route: 065
     Dates: start: 20221105
  6. DICLOFENAC [Concomitant]
     Active Substance: DICLOFENAC
     Indication: Hysterectomy
     Dosage: UNK
     Route: 065
     Dates: start: 20240418, end: 20240427
  7. BECLOMETHASONE DIPROPIONATE [Concomitant]
     Active Substance: BECLOMETHASONE DIPROPIONATE
     Indication: Asthma
     Dosage: UNK
     Route: 065
     Dates: start: 20090605
  8. VENTOLIN [Concomitant]
     Active Substance: ALBUTEROL SULFATE
     Indication: Adverse drug reaction
     Dosage: UNK
     Route: 065
     Dates: start: 19980605
  9. Evolve ha [Concomitant]
     Indication: Dry eye
     Dosage: UNK
     Route: 065
     Dates: start: 20230405
  10. XAILIN NIGHT [Concomitant]
     Indication: Dry eye
     Dosage: UNK
     Route: 065
     Dates: start: 20230405
  11. NORETHINDRONE [Concomitant]
     Active Substance: NORETHINDRONE
     Indication: Heavy menstrual bleeding
     Dosage: UNK
     Route: 065
     Dates: start: 20240320, end: 20240330
  12. PROVERA [Concomitant]
     Active Substance: MEDROXYPROGESTERONE ACETATE
     Indication: Menopause
     Dosage: UNK
     Route: 065
     Dates: start: 20230605, end: 20240418
  13. PROGESTERONE [Concomitant]
     Active Substance: PROGESTERONE
     Indication: Contraception
     Dosage: UNK
     Route: 065
     Dates: start: 20221105, end: 20240418
  14. PROGESTERONE [Concomitant]
     Active Substance: PROGESTERONE
     Indication: Menopause
  15. VITAMIN D [Concomitant]
     Active Substance: VITAMIN D NOS
     Indication: Vitamin D decreased
     Dosage: UNK
     Route: 065
     Dates: start: 20221105
  16. TRANEXAMIC ACID [Concomitant]
     Active Substance: TRANEXAMIC ACID
     Indication: Heavy menstrual bleeding
     Dosage: UNK
     Route: 065
     Dates: start: 20240320, end: 20240418
  17. ENOXAPARIN SODIUM [Concomitant]
     Active Substance: ENOXAPARIN SODIUM
     Dosage: UNK
     Route: 065
     Dates: start: 20240418, end: 20240501

REACTIONS (9)
  - Ear swelling [Recovering/Resolving]
  - Dental paraesthesia [Recovering/Resolving]
  - Fatigue [Recovering/Resolving]
  - Swelling [Recovering/Resolving]
  - Urticaria [Recovering/Resolving]
  - Urticaria [Recovering/Resolving]
  - Headache [Recovered/Resolved]
  - Swelling face [Recovering/Resolving]
  - Pruritus [Recovering/Resolving]

NARRATIVE: CASE EVENT DATE: 20240531
